FAERS Safety Report 19445090 (Version 1)
Quarter: 2021Q2

REPORT INFORMATION
  Report Type: Other
  Country: BE (occurrence: BE)
  Receive Date: 20210621
  Receipt Date: 20210621
  Transmission Date: 20210717
  Serious: Yes (Hospitalization)
  Sender: FDA-Public Use
  Company Number: BE-B.BRAUN MEDICAL INC.-2112954

PATIENT
  Age: 69 Year
  Sex: Male

DRUGS (2)
  1. ACETAMINOPHEN. [Suspect]
     Active Substance: ACETAMINOPHEN
     Indication: ANALGESIC THERAPY
  2. FLUCLOXACILLIN [Interacting]
     Active Substance: FLUCLOXACILLIN

REACTIONS (1)
  - Metabolic acidosis [Recovered/Resolved]
